FAERS Safety Report 24053568 (Version 5)
Quarter: 2025Q1

REPORT INFORMATION
  Report Type: Spontaneous
  Country: CA (occurrence: CA)
  Receive Date: 20240705
  Receipt Date: 20250317
  Transmission Date: 20250408
  Serious: Yes (Other)
  Sender: CELLTRION
  Company Number: CA-PFIZER INC-202400193099

PATIENT

DRUGS (8)
  1. INFLECTRA [Suspect]
     Active Substance: INFLIXIMAB-DYYB
     Indication: Crohn^s disease
     Route: 042
     Dates: start: 20240612, end: 20240612
  2. INFLECTRA [Suspect]
     Active Substance: INFLIXIMAB-DYYB
     Route: 042
     Dates: start: 20240626
  3. INFLECTRA [Suspect]
     Active Substance: INFLIXIMAB-DYYB
     Route: 042
     Dates: start: 20240725
  4. INFLECTRA [Suspect]
     Active Substance: INFLIXIMAB-DYYB
     Route: 042
     Dates: start: 20240919
  5. INFLECTRA [Suspect]
     Active Substance: INFLIXIMAB-DYYB
     Route: 042
     Dates: start: 20241114
  6. INFLECTRA [Suspect]
     Active Substance: INFLIXIMAB-DYYB
     Route: 042
     Dates: start: 20250109
  7. INFLECTRA [Suspect]
     Active Substance: INFLIXIMAB-DYYB
     Route: 042
     Dates: start: 20250306
  8. SKYRIZI [Concomitant]
     Active Substance: RISANKIZUMAB-RZAA
     Dates: start: 2023

REACTIONS (4)
  - Blood pressure increased [Not Recovered/Not Resolved]
  - Blood pressure fluctuation [Unknown]
  - Heart rate decreased [Unknown]
  - Blood pressure systolic increased [Not Recovered/Not Resolved]

NARRATIVE: CASE EVENT DATE: 20240612
